FAERS Safety Report 23423592 (Version 1)
Quarter: 2024Q1

REPORT INFORMATION
  Report Type: Spontaneous
  Country: IT (occurrence: IT)
  Receive Date: 20240119
  Receipt Date: 20240119
  Transmission Date: 20240410
  Serious: Yes (Hospitalization, Other)
  Sender: FDA-Public Use
  Company Number: None

PATIENT
  Age: 47 Year
  Sex: Female
  Weight: 40 kg

DRUGS (6)
  1. ZIRABEV [Suspect]
     Active Substance: BEVACIZUMAB-BVZR
     Indication: Rectal adenocarcinoma
     Dosage: 300 MG
     Route: 042
     Dates: start: 20230822
  2. OXALIPLATIN [Suspect]
     Active Substance: OXALIPLATIN
     Indication: Rectal adenocarcinoma
     Dosage: 170 MG
     Route: 042
     Dates: start: 20230822, end: 20230822
  3. OXALIPLATIN [Suspect]
     Active Substance: OXALIPLATIN
     Dosage: 132.60 MG
     Route: 042
     Dates: start: 20230921, end: 20230921
  4. CAPECITABINE [Suspect]
     Active Substance: CAPECITABINE
     Indication: Rectal adenocarcinoma
     Dosage: 1360 MG IN THE MORNING  AND 1000 MG IN THE EVENING
     Route: 048
     Dates: start: 20230822, end: 20230906
  5. ONDANSETRON HYDROCHLORIDE [Concomitant]
     Active Substance: ONDANSETRON HYDROCHLORIDE
     Dosage: 8 MG
     Route: 042
     Dates: start: 20230822, end: 20230822
  6. DEXAMETHASONE [Concomitant]
     Active Substance: DEXAMETHASONE
     Dosage: 8 MG
     Route: 042
     Dates: start: 20230822, end: 20230822

REACTIONS (4)
  - Anaemia [Recovering/Resolving]
  - Diarrhoea [Recovered/Resolved]
  - Hypokalaemia [Recovered/Resolved]
  - Blood sodium decreased [Recovering/Resolving]

NARRATIVE: CASE EVENT DATE: 20230909
